FAERS Safety Report 6259339-X (Version None)
Quarter: 2009Q3

REPORT INFORMATION
  Report Type: 
  Country: None (occurrence: None)
  Receive Date: 20090707
  Receipt Date: 20090128
  Transmission Date: 20100115
  Serious: Yes (Hospitalization)
  Sender: FDA-Public Use
  Company Number: US-SANOFI-SYNTHELABO-A03200900268

PATIENT
  Sex: Male

DRUGS (6)
  1. PLAVIX [Suspect]
     Indication: STENT PLACEMENT
     Route: 048
     Dates: start: 20081208, end: 20081208
  2. PLAVIX [Suspect]
     Indication: MYOCARDIAL INFARCTION
     Route: 048
     Dates: start: 20081208, end: 20081208
  3. PLAVIX [Suspect]
     Route: 048
     Dates: start: 20081201, end: 20081228
  4. PLAVIX [Suspect]
     Route: 048
     Dates: start: 20081201, end: 20081228
  5. PLAVIX [Suspect]
     Route: 048
     Dates: start: 20081229
  6. PLAVIX [Suspect]
     Route: 048
     Dates: start: 20081229

REACTIONS (3)
  - DEVICE MALFUNCTION [None]
  - OVERDOSE [None]
  - THROMBOSIS IN DEVICE [None]
